FAERS Safety Report 9115090 (Version 1)
Quarter: 2013Q1

REPORT INFORMATION
  Report Type: Spontaneous
  Country: US (occurrence: None)
  Receive Date: 20130220
  Receipt Date: 20130220
  Transmission Date: 20140127
  Serious: No
  Sender: FDA-Public Use
  Company Number: None

PATIENT
  Age: 42 Year
  Sex: Male

DRUGS (1)
  1. CEFTRIAXONE [Suspect]
     Route: 042
     Dates: start: 20130208, end: 20130212

REACTIONS (4)
  - Pyrexia [None]
  - Rash [None]
  - Urticaria [None]
  - Pruritus [None]
